FAERS Safety Report 20439472 (Version 3)
Quarter: 2022Q1

REPORT INFORMATION
  Report Type: Report from Study
  Country: FR (occurrence: FR)
  Receive Date: 20220207
  Receipt Date: 20220328
  Transmission Date: 20220423
  Serious: Yes (Hospitalization)
  Sender: FDA-Public Use
  Company Number: FR-SAREPTA THERAPEUTICS INC.-SRP2022-002022

PATIENT

DRUGS (10)
  1. GOLODIRSEN [Suspect]
     Active Substance: GOLODIRSEN
     Indication: Duchenne muscular dystrophy
     Dosage: 1650 MILLIGRAM, WEEKLY
     Route: 042
     Dates: start: 20210111, end: 20211220
  2. GOLODIRSEN [Suspect]
     Active Substance: GOLODIRSEN
     Dosage: 1650 MILLIGRAM, WEEKLY
     Route: 042
     Dates: start: 20220131, end: 20220207
  3. LISINOPRIL [Concomitant]
     Active Substance: LISINOPRIL
     Indication: Ejection fraction decreased
     Dosage: 5 MILLIGRAM, QD
     Route: 048
     Dates: start: 20190907
  4. SPIRONOLACTONE [Concomitant]
     Active Substance: SPIRONOLACTONE
     Indication: Ejection fraction decreased
     Dosage: 25+12.5 MILLIGRAM, 1-0-1/2 TABLETS, QD
     Route: 048
     Dates: start: 20190322
  5. DEFLAZACORT [Concomitant]
     Active Substance: DEFLAZACORT
     Indication: Duchenne muscular dystrophy
     Dosage: 30 MILLIGRAM, EVERY OTHER DAY
     Route: 048
     Dates: start: 20200212
  6. CALCIUM [Concomitant]
     Active Substance: CALCIUM
     Indication: Osteoporosis prophylaxis
     Dosage: 2000 INTERNATIONAL UNIT, QD
     Route: 048
     Dates: start: 20200615
  7. CALCIUM [Concomitant]
     Active Substance: CALCIUM
     Dosage: 500 MILLIGRAM, 2X/48H
     Route: 048
     Dates: start: 20220226
  8. VITAMIN D NOS [Concomitant]
     Active Substance: VITAMIN D NOS
     Indication: Osteoporosis prophylaxis
     Dosage: 4000 INTERNATIONAL UNIT, QD
     Route: 048
     Dates: start: 20211201, end: 20220226
  9. MAGNESIUM [Concomitant]
     Active Substance: MAGNESIUM
     Indication: Prophylaxis
     Dosage: 100 MILLIGRAM, QD
     Route: 048
     Dates: start: 20190809
  10. ASCORBIC ACID\ZINC [Concomitant]
     Active Substance: ASCORBIC ACID\ZINC
     Indication: Prophylaxis
     Dosage: UNK, QD
     Route: 048
     Dates: start: 20200917

REACTIONS (1)
  - Haematuria [Recovered/Resolved with Sequelae]

NARRATIVE: CASE EVENT DATE: 20220125
